FAERS Safety Report 8554562-3 (Version None)
Quarter: 2012Q3

REPORT INFORMATION
  Report Type: 
  Country: None (occurrence: None)
  Receive Date: 20120731
  Receipt Date: 20120716
  Transmission Date: 20120928
  Serious: No
  Sender: FDA-Public Use
  Company Number: US-ASTRAZENECA-2012SE49765

PATIENT
  Age: 85 Year
  Sex: Female
  Weight: 40.8 kg

DRUGS (1)
  1. TOPROL-XL [Suspect]
     Route: 048

REACTIONS (5)
  - INADEQUATE DIET [None]
  - ABDOMINAL DISCOMFORT [None]
  - WEIGHT DECREASED [None]
  - APHAGIA [None]
  - DRUG DOSE OMISSION [None]
